FAERS Safety Report 15497909 (Version 1)
Quarter: 2018Q4

REPORT INFORMATION
  Report Type: Spontaneous
  Country: US (occurrence: US)
  Receive Date: 20181015
  Receipt Date: 20181015
  Transmission Date: 20190205
  Serious: No
  Sender: FDA-Public Use
  Company Number: US-PFIZER INC-2018377043

PATIENT
  Sex: Male

DRUGS (2)
  1. LYRICA [Suspect]
     Active Substance: PREGABALIN
     Indication: DIABETIC NEUROPATHY
     Dosage: 2 DF PER DAY
  2. LYRICA [Suspect]
     Active Substance: PREGABALIN
     Dosage: 3 DF PER DAY
     Dates: start: 201808

REACTIONS (2)
  - Drug ineffective [Unknown]
  - Prescribed overdose [Unknown]
